FAERS Safety Report 13693998 (Version 2)
Quarter: 2017Q3

REPORT INFORMATION
  Report Type: Spontaneous
  Country: FR (occurrence: FR)
  Receive Date: 20170627
  Receipt Date: 20170717
  Transmission Date: 20171127
  Serious: Yes (Other)
  Sender: FDA-Public Use
  Company Number: FR-JNJFOC-20170621994

PATIENT
  Age: 39 Year
  Sex: Female

DRUGS (5)
  1. EPITOMAX [Suspect]
     Active Substance: TOPIRAMATE
     Indication: MIGRAINE PROPHYLAXIS
     Dosage: 1 IN MORNING AND 1 IN EVENING
     Route: 048
     Dates: start: 20170616, end: 20170616
  2. EPITOMAX [Suspect]
     Active Substance: TOPIRAMATE
     Indication: MIGRAINE PROPHYLAXIS
     Dosage: 1 IN MORNING AND 1 IN EVENING
     Route: 048
     Dates: start: 20170617, end: 20170618
  3. ALPRAZOLAM. [Concomitant]
     Active Substance: ALPRAZOLAM
     Indication: ANXIETY
     Route: 048
  4. OPTIMIZETTE [Concomitant]
     Active Substance: DESOGESTREL
     Indication: CONTRACEPTION
     Route: 048
  5. RUBOZINC [Concomitant]
     Indication: ACNE
     Route: 048

REACTIONS (8)
  - Vertigo [Recovered/Resolved]
  - Decreased appetite [Unknown]
  - Pollakiuria [Unknown]
  - Rectal haemorrhage [Recovered/Resolved]
  - Morbid thoughts [Recovered/Resolved]
  - Crying [Recovered/Resolved]
  - Nausea [Recovered/Resolved]
  - Dry mouth [Unknown]

NARRATIVE: CASE EVENT DATE: 20170617
